FAERS Safety Report 6276420-X (Version None)
Quarter: 2009Q3

REPORT INFORMATION
  Report Type: 
  Country: None (occurrence: None)
  Receive Date: 20090720
  Receipt Date: 20080722
  Transmission Date: 20100115
  Serious: Yes (Other)
  Sender: FDA-Public Use
  Company Number: USA-2008-0034067

PATIENT
  Sex: Female

DRUGS (3)
  1. MORPHINE SULFATE [Suspect]
     Indication: DRUG ABUSE
  2. OXYCONTIN [Suspect]
     Indication: DRUG ABUSE
  3. LORTAB [Suspect]
     Indication: DRUG ABUSE

REACTIONS (8)
  - DEPRESSION [None]
  - DRUG ABUSE [None]
  - DRUG DEPENDENCE [None]
  - DRUG WITHDRAWAL SYNDROME [None]
  - EUPHORIC MOOD [None]
  - INFLUENZA LIKE ILLNESS [None]
  - MALAISE [None]
  - SEDATION [None]
